FAERS Safety Report 7841802-9 (Version None)
Quarter: 2011Q4

REPORT INFORMATION
  Report Type: 
  Country: None (occurrence: None)
  Receive Date: 20111025
  Receipt Date: 20111018
  Transmission Date: 20120403
  Serious: Yes (Disabling)
  Sender: FDA-Public Use
  Company Number: AU-B.I. PHARMACEUTICALS,INC./RIDGEFIELD-2011-AU-01936AU

PATIENT
  Sex: Female
  Weight: 55 kg

DRUGS (8)
  1. SPIRIVA [Suspect]
     Indication: CHRONIC OBSTRUCTIVE PULMONARY DISEASE
  2. TEMAZEPAM [Concomitant]
     Dosage: 10 MG
     Dates: start: 19900101
  3. CITALOPRAM HYDROBROMIDE [Concomitant]
     Dosage: 20 MG
     Dates: start: 20090101
  4. SYMBICORT [Concomitant]
     Dosage: 200/6
  5. TENORMIN [Concomitant]
     Dosage: 50 MG
  6. SPIRIVA [Suspect]
     Indication: ASTHMA
     Dosage: 18 MCG
     Dates: start: 20080101, end: 20110901
  7. EZETIMIBE [Concomitant]
     Dosage: 10 MG
     Dates: start: 20090101
  8. RABEPRAZOLE SODIUM [Concomitant]
     Dosage: 20 MG
     Dates: start: 20060101

REACTIONS (1)
  - DYSPNOEA [None]
